FAERS Safety Report 13997045 (Version 1)
Quarter: 2017Q3

REPORT INFORMATION
  Report Type: Spontaneous
  Country: DE (occurrence: DE)
  Receive Date: 20170921
  Receipt Date: 20170921
  Transmission Date: 20171128
  Serious: Yes (Other)
  Sender: FDA-Public Use
  Company Number: DE-PFIZER INC-2017402331

PATIENT
  Age: 74 Year
  Sex: Male

DRUGS (3)
  1. MEROPENEM. [Suspect]
     Active Substance: MEROPENEM
     Indication: SEPSIS
     Dosage: UNK
  2. MEROPENEM. [Suspect]
     Active Substance: MEROPENEM
     Indication: STAPHYLOCOCCAL INFECTION
  3. MEROPENEM. [Suspect]
     Active Substance: MEROPENEM
     Indication: PROTEUS INFECTION

REACTIONS (3)
  - C-reactive protein abnormal [Unknown]
  - Renal impairment [Unknown]
  - Product use in unapproved indication [Unknown]
